FAERS Safety Report 5401106-0 (Version None)
Quarter: 2007Q3

REPORT INFORMATION
  Report Type: 
  Country: None (occurrence: None)
  Receive Date: 20070731
  Receipt Date: 20070723
  Transmission Date: 20080115
  Serious: Yes (Disabling, Other)
  Sender: FDA-Public Use
  Company Number: PHFR2007GB01672

PATIENT
  Age: 64 Year
  Sex: Male

DRUGS (4)
  1. RIVASTIGMINE [Suspect]
     Indication: PARKINSON'S DISEASE
     Dosage: 1.5 MG, BID
     Route: 065
     Dates: start: 20070304, end: 20070322
  2. CO-CARELDOPA [Concomitant]
     Indication: PARKINSON'S DISEASE
     Dosage: 25/100 TABS (8 DAILY)
     Route: 065
  3. SINEMET CR [Concomitant]
     Indication: PARKINSON'S DISEASE
     Dosage: 2 DF, QD
     Route: 065
  4. LOFEPRAMINE [Concomitant]
     Indication: DEPRESSION
     Dosage: 70 MG, TID
     Route: 065

REACTIONS (4)
  - BLOOD PRESSURE INCREASED [None]
  - FALL [None]
  - IMMOBILE [None]
  - PYREXIA [None]
